FAERS Safety Report 7444723-9 (Version None)
Quarter: 2011Q2

REPORT INFORMATION
  Report Type: 
  Country: None (occurrence: None)
  Receive Date: 20110429
  Receipt Date: 20110426
  Transmission Date: 20111010
  Serious: Yes (Other)
  Sender: FDA-Public Use
  Company Number: US-PFIZER INC-2010034988

PATIENT
  Sex: Female

DRUGS (1)
  1. CHANTIX [Suspect]
     Indication: SMOKING CESSATION THERAPY
     Dosage: STARTER PACK
     Route: 048
     Dates: start: 20080423, end: 20080616

REACTIONS (11)
  - CONFUSIONAL STATE [None]
  - DEREALISATION [None]
  - AFFECTIVE DISORDER [None]
  - BIPOLAR DISORDER [None]
  - MENTAL DISORDER [None]
  - ANXIETY [None]
  - NERVOUS SYSTEM DISORDER [None]
  - INSOMNIA [None]
  - PARANOIA [None]
  - DEPRESSION [None]
  - AMNESIA [None]
